FAERS Safety Report 7573700-2 (Version None)
Quarter: 2011Q2

REPORT INFORMATION
  Report Type: 
  Country: None (occurrence: None)
  Receive Date: 20110627
  Receipt Date: 20110530
  Transmission Date: 20111010
  Serious: No
  Sender: FDA-Public Use
  Company Number: JP-ROCHE-784036

PATIENT
  Age: 7 Year

DRUGS (1)
  1. TAMIFLU [Suspect]
     Dosage: DOSAGE IS UNCERTAIN
     Route: 048

REACTIONS (2)
  - OVERDOSE [None]
  - ABNORMAL BEHAVIOUR [None]
